FAERS Safety Report 24528450 (Version 12)
Quarter: 2025Q4

REPORT INFORMATION
  Report Type: Spontaneous
  Country: US (occurrence: US)
  Receive Date: 20241021
  Receipt Date: 20251229
  Transmission Date: 20260117
  Serious: Yes (Life-Threatening, Other)
  Sender: CSL BEHRING
  Company Number: US-BEH-2024182009

PATIENT
  Age: 42 Year
  Sex: Female
  Weight: 78.912 kg

DRUGS (13)
  1. HAEGARDA [Suspect]
     Active Substance: HUMAN C1-ESTERASE INHIBITOR
     Indication: Hereditary angioedema
     Dosage: 5000 IU (10 ML), BIW
     Route: 058
     Dates: start: 202409
  2. HAEGARDA [Suspect]
     Active Substance: HUMAN C1-ESTERASE INHIBITOR
     Indication: Prophylaxis
     Dosage: 2000 IU, BIW
     Route: 058
     Dates: start: 202409
  3. HAEGARDA [Suspect]
     Active Substance: HUMAN C1-ESTERASE INHIBITOR
     Indication: Hereditary angioedema
     Dosage: 5000 IU (10 ML), BIW
     Route: 058
     Dates: start: 202409
  4. HAEGARDA [Suspect]
     Active Substance: HUMAN C1-ESTERASE INHIBITOR
     Indication: Prophylaxis
     Dosage: 3000 IU, BIW
     Route: 058
     Dates: start: 202409
  5. HAEGARDA [Suspect]
     Active Substance: HUMAN C1-ESTERASE INHIBITOR
     Dosage: 5000 IU/KG, BIW
     Route: 065
     Dates: start: 20251119
  6. RUCONEST [Concomitant]
     Active Substance: CONESTAT ALFA
  7. STERILE WATER [Concomitant]
     Active Substance: WATER
     Dosage: PRODUCT STRENGTH: 50ML
  8. TAKHZYRO [Concomitant]
     Active Substance: LANADELUMAB-FLYO
  9. SODIUM CHLORIDE [Concomitant]
     Active Substance: SODIUM CHLORIDE
     Dosage: 10 ML
  10. ICATIBANT [Concomitant]
     Active Substance: ICATIBANT ACETATE
  11. ICATIBANT ACETATE [Concomitant]
     Active Substance: ICATIBANT ACETATE
  12. KYLEENA [Concomitant]
     Active Substance: LEVONORGESTREL
     Indication: Intrauterine contraception
  13. HAEGARDA [Concomitant]
     Active Substance: HUMAN C1-ESTERASE INHIBITOR
     Route: 065

REACTIONS (25)
  - Product dose omission issue [Unknown]
  - Hereditary angioedema [Recovered/Resolved]
  - Hereditary angioedema [Recovered/Resolved]
  - Hereditary angioedema [Recovered/Resolved]
  - Hereditary angioedema [Recovered/Resolved]
  - Hereditary angioedema [Unknown]
  - Hereditary angioedema [Unknown]
  - Hereditary angioedema [Unknown]
  - Hereditary angioedema [Unknown]
  - Hereditary angioedema [Unknown]
  - Hereditary angioedema [Unknown]
  - Hereditary angioedema [Unknown]
  - Hereditary angioedema [Unknown]
  - Hereditary angioedema [Unknown]
  - Hereditary angioedema [Unknown]
  - Hereditary angioedema [Unknown]
  - Hereditary angioedema [Unknown]
  - Hereditary angioedema [Recovered/Resolved]
  - Hereditary angioedema [Recovered/Resolved]
  - Hereditary angioedema [Unknown]
  - Hereditary angioedema [Unknown]
  - Hereditary angioedema [Unknown]
  - Hereditary angioedema [Unknown]
  - Injection site bruising [Unknown]
  - Weight increased [Unknown]

NARRATIVE: CASE EVENT DATE: 20240927
